FAERS Safety Report 12285439 (Version 1)
Quarter: 2016Q2

REPORT INFORMATION
  Report Type: Report from Study
  Country: US (occurrence: US)
  Receive Date: 20160420
  Receipt Date: 20160420
  Transmission Date: 20160815
  Serious: Yes (Other)
  Sender: FDA-Public Use
  Company Number: US-AMGEN-USASL2016048104

PATIENT
  Age: 76 Year
  Sex: Female

DRUGS (1)
  1. ENBREL [Suspect]
     Active Substance: ETANERCEPT
     Indication: RHEUMATOID ARTHRITIS
     Dosage: UNK , QWK
     Route: 065

REACTIONS (7)
  - Intentional product misuse [Unknown]
  - Pain [Unknown]
  - Hip arthroplasty [Unknown]
  - Clostridium difficile infection [Recovering/Resolving]
  - Abdominal operation [Unknown]
  - Mobility decreased [Unknown]
  - Thermal burn [Unknown]

NARRATIVE: CASE EVENT DATE: 2013
